FAERS Safety Report 9384804 (Version 3)
Quarter: 2013Q4

REPORT INFORMATION
  Report Type: Spontaneous
  Country: US (occurrence: US)
  Receive Date: 20130705
  Receipt Date: 20131014
  Transmission Date: 20140711
  Serious: No
  Sender: FDA-Public Use
  Company Number: US-PFIZER INC-2013196152

PATIENT
  Age: 64 Year
  Sex: Female

DRUGS (1)
  1. CAMPTOSAR [Suspect]
     Indication: COLON CANCER
     Dosage: 360 MG, CYCLIC (EVERY 2 WEEKS)
     Dates: start: 20121105

REACTIONS (3)
  - Blood count abnormal [Unknown]
  - Disease progression [Unknown]
  - Colon cancer [Unknown]
